FAERS Safety Report 8027626-0 (Version None)
Quarter: 2012Q1

REPORT INFORMATION
  Report Type: 
  Country: None (occurrence: None)
  Receive Date: 20120106
  Receipt Date: 20120104
  Transmission Date: 20120608
  Serious: Yes (Hospitalization)
  Sender: FDA-Public Use
  Company Number: US-B.I. PHARMACEUTICALS,INC./RIDGEFIELD-2012-BP-00228BP

PATIENT
  Age: 73 Year
  Sex: Male

DRUGS (5)
  1. LISINOPRIL [Concomitant]
     Indication: HYPERTENSION
     Dosage: 40 MG
     Route: 048
  2. DIGOXIN [Concomitant]
     Indication: ATRIAL FIBRILLATION
     Dosage: 0.125 MG
     Route: 048
  3. PRADAXA [Suspect]
     Indication: ATRIAL FIBRILLATION
     Dosage: 300 MG
     Route: 048
     Dates: start: 20111205, end: 20120103
  4. LOSARTAN POTASSIUM [Concomitant]
     Indication: HYPERTENSION
     Dosage: 50 MG
     Route: 048
  5. VERAPAMIL [Concomitant]
     Indication: HYPERTENSION
     Dosage: 240 MG
     Route: 048

REACTIONS (6)
  - BLOOD URINE PRESENT [None]
  - JOINT SWELLING [None]
  - ASTHENIA [None]
  - RENAL FAILURE ACUTE [None]
  - SKIN EXFOLIATION [None]
  - FALL [None]
